FAERS Safety Report 6377099-9 (Version None)
Quarter: 2009Q3

REPORT INFORMATION
  Report Type: 
  Country: None (occurrence: None)
  Receive Date: 20090923
  Receipt Date: 20090923
  Transmission Date: 20100115
  Serious: Yes (Hospitalization)
  Sender: FDA-Public Use
  Company Number: None

PATIENT
  Age: 63 Year
  Sex: Male
  Weight: 78.2 kg

DRUGS (2)
  1. RIFAMPIN [Suspect]
     Dosage: 300 MG BID PO
     Route: 048
     Dates: start: 20090724, end: 20090728
  2. TRIMETHOPRIM-SULFAMETHOXAZOLE [Suspect]
     Dosage: 2 TAB BID PO
     Route: 048
     Dates: start: 20090724, end: 20090728

REACTIONS (6)
  - DEHYDRATION [None]
  - DIZZINESS [None]
  - FLUID INTAKE REDUCED [None]
  - HYPERHIDROSIS [None]
  - HYPOPHAGIA [None]
  - RENAL FAILURE ACUTE [None]
